FAERS Safety Report 15279685 (Version 1)
Quarter: 2018Q3

REPORT INFORMATION
  Report Type: Spontaneous
  Country: US (occurrence: US)
  Receive Date: 20180815
  Receipt Date: 20180815
  Transmission Date: 20181010
  Serious: No
  Sender: FDA-Public Use
  Company Number: US-PFIZER INC-2018329346

PATIENT
  Age: 58 Year
  Sex: Female
  Weight: 154.22 kg

DRUGS (2)
  1. NEURONTIN [Suspect]
     Active Substance: GABAPENTIN
     Indication: PAIN
     Dosage: 800 MG, 4X/DAY (400 MG, 2 CAPSULES, EVERY 6 HOURS)
     Route: 048
  2. LISINOPRIL. [Concomitant]
     Active Substance: LISINOPRIL
     Indication: HYPERTENSION
     Dosage: 25 MG, 1X/DAY(25 MG, TABLET, ONCE A DAY)

REACTIONS (3)
  - Dyskinesia [Unknown]
  - Product use in unapproved indication [Unknown]
  - Tremor [Unknown]
